FAERS Safety Report 8596716-6 (Version None)
Quarter: 2012Q3

REPORT INFORMATION
  Report Type: 
  Country: None (occurrence: None)
  Receive Date: 20120815
  Receipt Date: 20120803
  Transmission Date: 20120928
  Serious: No
  Sender: FDA-Public Use
  Company Number: US-ASTRAZENECA-2012SE55128

PATIENT
  Age: 28 Year
  Sex: Female
  Weight: 99.8 kg

DRUGS (3)
  1. LAMICTAL [Concomitant]
     Indication: ANXIETY
  2. ATIVAN [Concomitant]
     Indication: ANXIETY
  3. SEROQUEL [Suspect]
     Indication: ANXIETY
     Route: 048

REACTIONS (7)
  - INSOMNIA [None]
  - OFF LABEL USE [None]
  - COLD SWEAT [None]
  - CHILLS [None]
  - HOT FLUSH [None]
  - DRUG DOSE OMISSION [None]
  - DRUG WITHDRAWAL SYNDROME [None]
